FAERS Safety Report 5712382-9 (Version None)
Quarter: 2008Q2

REPORT INFORMATION
  Report Type: 
  Country: None (occurrence: None)
  Receive Date: 20080422
  Receipt Date: 20080418
  Transmission Date: 20081010
  Serious: Yes (Other)
  Sender: FDA-Public Use
  Company Number: PHNU2008DE01075

PATIENT
  Age: 67 Year
  Sex: Male
  Weight: 106 kg

DRUGS (6)
  1. RASILEZ [Suspect]
     Indication: HYPERTENSION
     Dosage: 150 MG/D
     Route: 048
     Dates: start: 20080215
  2. ANGIOTENSIN CONVERTING ENZYME BLOCKERS [Concomitant]
     Indication: HYPERTENSION
     Dates: start: 20070201
  3. LASIX [Concomitant]
     Indication: HYPERTENSION
     Dosage: 80 MG/D
     Dates: start: 20070201
  4. EBRANTIL [Concomitant]
     Indication: HYPERTENSION
     Dosage: 180 MG/D
     Dates: start: 20070201
  5. TEVETEN HCT [Concomitant]
     Dosage: 600 MG/D
  6. MARCUMAR [Concomitant]

REACTIONS (3)
  - ARRHYTHMIA [None]
  - ATRIAL FIBRILLATION [None]
  - ELECTROCARDIOGRAM ABNORMAL [None]
